FAERS Safety Report 25620780 (Version 1)
Quarter: 2025Q3

REPORT INFORMATION
  Report Type: Spontaneous
  Country: US (occurrence: US)
  Receive Date: 20250730
  Receipt Date: 20250730
  Transmission Date: 20251020
  Serious: No
  Sender: Kenvue
  Company Number: US-KENVUE-20250703324

PATIENT

DRUGS (1)
  1. ZYRTEC ALLERGY [Suspect]
     Active Substance: CETIRIZINE HYDROCHLORIDE
     Indication: Hypersensitivity
     Dosage: 1 DOSAGE FORM, ONCE A DAY
     Route: 065

REACTIONS (3)
  - Somnolence [Unknown]
  - Fatigue [Unknown]
  - Therapeutic response unexpected [Unknown]
